FAERS Safety Report 4849220-2 (Version None)
Quarter: 2005Q4

REPORT INFORMATION
  Report Type: 
  Country: None (occurrence: None)
  Receive Date: 20051209
  Receipt Date: 20051129
  Transmission Date: 20060501
  Serious: Yes (Hospitalization)
  Sender: FDA-Public Use
  Company Number: US-BRISTOL-MYERS SQUIBB COMPANY-13196704

PATIENT
  Age: 51 Year
  Sex: Male
  Weight: 68 kg

DRUGS (2)
  1. ERBITUX [Suspect]
     Indication: COLON CANCER METASTATIC
     Dosage: GIVEN 30 MINUTES PRIOR TO ERBITUX.
     Route: 042
     Dates: start: 20051128, end: 20051128
  2. DIPHENHYDRAMINE HCL [Concomitant]
     Indication: PREMEDICATION
     Route: 042
     Dates: start: 20051128, end: 20051128

REACTIONS (3)
  - CONVULSION [None]
  - HYPERTENSION [None]
  - VOMITING [None]
